FAERS Safety Report 12783251 (Version 1)
Quarter: 2016Q3

REPORT INFORMATION
  Report Type: Spontaneous
  Country: US (occurrence: US)
  Receive Date: 20160927
  Receipt Date: 20160927
  Transmission Date: 20161109
  Serious: Yes (Life-Threatening, Other)
  Sender: FDA-Public Use
  Company Number: US-BEH-2011030098

PATIENT
  Age: 29 Year
  Sex: Male
  Weight: 86.64 kg

DRUGS (14)
  1. HIZENTRA [Suspect]
     Active Substance: HUMAN IMMUNOGLOBULIN G
     Dosage: 4 GM 20 ML
     Route: 058
  2. PEPTO-BISMOL [Concomitant]
     Active Substance: BISMUTH SUBSALICYLATE
  3. SIMCOR ER [Concomitant]
     Dosage: 500-20 MG TABLET DAILY
     Route: 048
  4. HIZENTRA [Suspect]
     Active Substance: HUMAN IMMUNOGLOBULIN G
     Indication: HYPOGAMMAGLOBULINAEMIA
     Route: 058
     Dates: start: 201106
  5. HIZENTRA [Suspect]
     Active Substance: HUMAN IMMUNOGLOBULIN G
     Indication: IMMUNODEFICIENCY
     Route: 058
  6. LISINOPRIL. [Concomitant]
     Active Substance: LISINOPRIL
     Route: 048
  7. ZYRTEC [Concomitant]
     Active Substance: CETIRIZINE HYDROCHLORIDE
     Indication: HYPERSENSITIVITY
     Dosage: 10 MG TABLET DAILY PRN
     Route: 048
  8. HIZENTRA [Suspect]
     Active Substance: HUMAN IMMUNOGLOBULIN G
     Route: 058
  9. PATANASE [Concomitant]
     Active Substance: OLOPATADINE HYDROCHLORIDE
     Dosage: 6%; 2 SPRAYS BID
     Route: 045
  10. SINGULAIR [Concomitant]
     Active Substance: MONTELUKAST SODIUM
     Dosage: HS
     Route: 048
  11. HIZENTRA [Suspect]
     Active Substance: HUMAN IMMUNOGLOBULIN G
     Route: 058
  12. PROAIR HFA [Concomitant]
     Active Substance: ALBUTEROL SULFATE
     Dosage: 1-2 PUFFS EVERY 4-6 HOURS PRN
     Route: 055
  13. FLONASE [Concomitant]
     Active Substance: FLUTICASONE PROPIONATE
     Dosage: 50 MCG; 1 SPRAY EACH NOSTRIL ONCE DAILY
     Route: 045
  14. NAPROXEN. [Concomitant]
     Active Substance: NAPROXEN
     Indication: PREMEDICATION

REACTIONS (16)
  - Aspartate aminotransferase increased [Recovered/Resolved]
  - Alanine aminotransferase increased [Recovered/Resolved]
  - Hepatitis B surface antibody positive [Unknown]
  - Faeces pale [Unknown]
  - Abdominal pain upper [Unknown]
  - Melaena [Unknown]
  - Inflammatory bowel disease [Unknown]
  - Arthralgia [Unknown]
  - Rash generalised [Unknown]
  - Chest pain [Unknown]
  - Liver function test abnormal [Recovered/Resolved]
  - Hepatitis B core antibody positive [Unknown]
  - Fatigue [Unknown]
  - Hepatitis A antibody positive [Unknown]
  - Haematochezia [Unknown]
  - Haematochezia [Unknown]

NARRATIVE: CASE EVENT DATE: 201109
